FAERS Safety Report 7070664-5 (Version None)
Quarter: 2010Q4

REPORT INFORMATION
  Report Type: 
  Country: None (occurrence: None)
  Receive Date: 20101029
  Receipt Date: 20101021
  Transmission Date: 20110411
  Serious: Yes (Other)
  Sender: FDA-Public Use
  Company Number: PE-PFIZER INC-2010135456

PATIENT
  Age: 76 Year
  Sex: Female

DRUGS (3)
  1. DETRUSITOL [Suspect]
     Indication: HYPERTONIC BLADDER
     Dosage: 4 MG, 1X/DAY
     Route: 048
     Dates: start: 20100501, end: 20100601
  2. ASPIRIN [Suspect]
     Dosage: UNK
  3. CAPTOPRIL [Concomitant]
     Indication: HYPERTENSION
     Dosage: UNK

REACTIONS (2)
  - HAEMATURIA [None]
  - URINARY TRACT INFECTION [None]
